FAERS Safety Report 8947719 (Version 2)
Quarter: 2013Q1

REPORT INFORMATION
  Report Type: Spontaneous
  Country: FR (occurrence: None)
  Receive Date: 20121127
  Receipt Date: 20121228
  Transmission Date: 20140127
  Serious: Yes (Other)
  Sender: FDA-Public Use
  Company Number: 2012-7822

PATIENT
  Sex: Male

DRUGS (4)
  1. DYSPORT [Suspect]
     Indication: MUSCLE SPASTICITY
     Dosage: 500 UNITS IN 1 IN 1 CYCLE(S)
     Route: 030
     Dates: start: 2012, end: 2012
  2. :SABRIL 500 (VIGABATRIN) [Concomitant]
  3. LAMICTAL 100 (LAMOTRIGINE) [Concomitant]
  4. EPITOMAX 100(TOPIRAMATE) [Concomitant]

REACTIONS (4)
  - Convulsion [None]
  - Epilepsy [None]
  - Sudden onset of sleep [None]
  - Somnolence [None]
